FAERS Safety Report 10185474 (Version 1)
Quarter: 2014Q2

REPORT INFORMATION
  Report Type: Spontaneous
  Country: US (occurrence: US)
  Receive Date: 20140521
  Receipt Date: 20140521
  Transmission Date: 20141212
  Serious: Yes (Other)
  Sender: FDA-Public Use
  Company Number: US-PFIZER INC-2014134579

PATIENT
  Sex: Male

DRUGS (2)
  1. LYRICA [Suspect]
     Indication: NEUROPATHY PERIPHERAL
     Dosage: 600 MG, DAILY
  2. LYRICA [Suspect]
     Indication: ANALGESIC THERAPY

REACTIONS (3)
  - Myocardial infarction [Unknown]
  - Feeling abnormal [Unknown]
  - Drug effect incomplete [Unknown]
